FAERS Safety Report 26009121 (Version 1)
Quarter: 2025Q4

REPORT INFORMATION
  Report Type: Spontaneous
  Country: US (occurrence: US)
  Receive Date: 20251107
  Receipt Date: 20251107
  Transmission Date: 20260117
  Serious: No
  Sender: PRINSTON PHARMACEUTICAL
  Company Number: US-PRINSTON PHARMACEUTICAL INC.-2025PRN00280

PATIENT
  Sex: Female

DRUGS (7)
  1. IRBESARTAN [Suspect]
     Active Substance: IRBESARTAN
     Indication: Hypertension
     Dosage: 75 MG, 1X/DAY
     Route: 048
     Dates: start: 20240413, end: 2024
  2. IRBESARTAN [Suspect]
     Active Substance: IRBESARTAN
     Dosage: 18.75 MG, 4X/DAY (EVERY 6 HOURS)
     Route: 048
     Dates: start: 2024
  3. IRBESARTAN [Suspect]
     Active Substance: IRBESARTAN
     Dosage: 56.25 MG, 1X/DAY
     Route: 048
     Dates: start: 20241203
  4. IRBESARTAN [Suspect]
     Active Substance: IRBESARTAN
     Dosage: 75 MG, 3X/DAY, (EVERY 8 HOURS)
     Route: 048
     Dates: start: 20250326
  5. IRBESARTAN [Suspect]
     Active Substance: IRBESARTAN
     Dosage: UNK, 3X/DAY (EVERY 8 HOURS)
     Route: 048
     Dates: start: 20250406
  6. IRBESARTAN [Suspect]
     Active Substance: IRBESARTAN
     Dosage: 18.75 MG, 3X/DAY
     Route: 048
     Dates: start: 20250414
  7. UNSPECIFIED INGREDIENT [Suspect]
     Active Substance: UNSPECIFIED INGREDIENT
     Dosage: UNK

REACTIONS (14)
  - Gastrointestinal pain [Not Recovered/Not Resolved]
  - Cataract operation [Unknown]
  - Abdominal discomfort [Not Recovered/Not Resolved]
  - Bowel movement irregularity [Not Recovered/Not Resolved]
  - Haemorrhoids [Unknown]
  - Blood pressure increased [Recovered/Resolved]
  - Heart rate increased [Recovered/Resolved]
  - Chromaturia [Recovered/Resolved]
  - Drug ineffective [Recovered/Resolved]
  - Headache [Unknown]
  - Pyrexia [Unknown]
  - Hypotension [Unknown]
  - Unevaluable event [Recovering/Resolving]
  - Suspected product quality issue [Unknown]

NARRATIVE: CASE EVENT DATE: 20240101
